FAERS Safety Report 8946828 (Version 2)
Quarter: 2013Q1

REPORT INFORMATION
  Report Type: Spontaneous
  Country: US (occurrence: US)
  Receive Date: 20121205
  Receipt Date: 20130311
  Transmission Date: 20140127
  Serious: Yes (Other)
  Sender: FDA-Public Use
  Company Number: US-GLAXOSMITHKLINE-A0998379A

PATIENT
  Age: 52 Year
  Sex: Female

DRUGS (3)
  1. ADVAIR [Suspect]
     Indication: ASTHMA
     Dosage: 1PUFF VARIABLE DOSE
     Route: 055
     Dates: start: 2004
  2. ADVAIR [Suspect]
     Indication: ASTHMA
     Dosage: 1PUFF VARIABLE DOSE
     Route: 055
     Dates: start: 2004
  3. ALBUTEROL [Concomitant]

REACTIONS (5)
  - Adrenal insufficiency [Recovered/Resolved]
  - Candida infection [Recovered/Resolved]
  - Asthma [Recovered/Resolved]
  - Weight decreased [Recovered/Resolved]
  - Product quality issue [Unknown]
